FAERS Safety Report 22065455 (Version 3)
Quarter: 2023Q1

REPORT INFORMATION
  Report Type: Spontaneous
  Country: FR (occurrence: FR)
  Receive Date: 20230306
  Receipt Date: 20230316
  Transmission Date: 20230417
  Serious: No
  Sender: FDA-Public Use
  Company Number: FR-ORGANON-O2303FRA000012

PATIENT
  Age: 28 Year
  Sex: Female
  Weight: 70 kg

DRUGS (1)
  1. NEXPLANON [Suspect]
     Active Substance: ETONOGESTREL
     Dosage: 1 IMPLANT IN LEFT ARM
     Route: 059
     Dates: start: 20191128

REACTIONS (11)
  - Palpitations [Not Recovered/Not Resolved]
  - Malaise [Not Recovered/Not Resolved]
  - Pregnancy test false positive [Unknown]
  - Nausea [Not Recovered/Not Resolved]
  - Dizziness [Not Recovered/Not Resolved]
  - Vomiting [Not Recovered/Not Resolved]
  - Amenorrhoea [Unknown]
  - Device issue [Not Recovered/Not Resolved]
  - Complication associated with device [Not Recovered/Not Resolved]
  - Complication of device removal [Not Recovered/Not Resolved]
  - Incorrect product administration duration [Unknown]

NARRATIVE: CASE EVENT DATE: 20221127
